FAERS Safety Report 25573556 (Version 1)
Quarter: 2025Q3

REPORT INFORMATION
  Report Type: Spontaneous
  Country: EU (occurrence: None)
  Receive Date: 20250717
  Receipt Date: 20250717
  Transmission Date: 20251021
  Serious: Yes (unspecified)
  Sender: FDA-CTU
  Company Number: None

PATIENT
  Age: 35 Year
  Sex: Male
  Weight: 82 kg

DRUGS (4)
  1. QUETIAPINE [Suspect]
     Active Substance: QUETIAPINE
     Indication: Panic attack
     Dates: start: 20240801
  2. QUETIAPINE [Suspect]
     Active Substance: QUETIAPINE
     Indication: Sleep deficit
  3. PREGABALIN [Concomitant]
     Active Substance: PREGABALIN
  4. MIRTAZAPINE [Concomitant]
     Active Substance: MIRTAZAPINE

REACTIONS (7)
  - Arthralgia [None]
  - Back pain [None]
  - Fear [None]
  - Abdominal pain upper [None]
  - Memory impairment [None]
  - Fatigue [None]
  - Photosensitivity reaction [None]

NARRATIVE: CASE EVENT DATE: 20240918
